FAERS Safety Report 20218021 (Version 1)
Quarter: 2021Q4

REPORT INFORMATION
  Report Type: Spontaneous
  Country: US (occurrence: US)
  Receive Date: 20211222
  Receipt Date: 20211222
  Transmission Date: 20220303
  Serious: No
  Sender: FDA-Public Use
  Company Number: US-MYOVANT SCIENCES GMBH-2021MYSCI1100073

PATIENT
  Age: 40 Year
  Sex: Female

DRUGS (10)
  1. MYFEMBREE [Suspect]
     Active Substance: ESTRADIOL HEMIHYDRATE\NORETHINDRONE ACETATE\RELUGOLIX
     Indication: Uterine leiomyoma
     Dosage: 1 TAB, QD
     Route: 048
     Dates: start: 202109
  2. GABAPENTIN [Concomitant]
     Active Substance: GABAPENTIN
     Indication: Muscle spasms
     Dosage: 800 MILLIGRAM, QID
     Route: 065
  3. LYRICA [Concomitant]
     Active Substance: PREGABALIN
     Indication: Muscle spasms
     Dosage: 75 MILLIGRAM, TID
     Route: 048
     Dates: start: 20211031
  4. MIRAPEX [Concomitant]
     Active Substance: PRAMIPEXOLE DIHYDROCHLORIDE
     Indication: Restless legs syndrome
     Dosage: .25 UNK, QHS
     Route: 048
  5. VITAMIN D3 [Concomitant]
     Active Substance: CHOLECALCIFEROL
     Indication: Supplementation therapy
     Dosage: 1 TAB, QD
     Route: 048
  6. MAGNESIUM [Concomitant]
     Active Substance: MAGNESIUM
     Indication: Supplementation therapy
     Dosage: 1 TAB, QD
     Route: 048
  7. MULTIVITAMIN                       /00097801/ [Concomitant]
     Indication: Supplementation therapy
     Dosage: 1 TAB, QD
     Route: 048
  8. CYMBALTA [Concomitant]
     Active Substance: DULOXETINE HYDROCHLORIDE
     Indication: Depression
     Dosage: 30 MILLIGRAM, QD
     Route: 048
  9. CYMBALTA [Concomitant]
     Active Substance: DULOXETINE HYDROCHLORIDE
     Indication: Neuralgia
  10. FERROUS SULFATE [Concomitant]
     Active Substance: FERROUS SULFATE
     Indication: Haemoglobin
     Dosage: 1 TAB, QD
     Route: 048

REACTIONS (3)
  - Heavy menstrual bleeding [Unknown]
  - Haemoglobin decreased [Unknown]
  - Muscle spasms [Recovering/Resolving]

NARRATIVE: CASE EVENT DATE: 20210926
